FAERS Safety Report 8529958-6 (Version None)
Quarter: 2012Q3

REPORT INFORMATION
  Report Type: 
  Country: None (occurrence: None)
  Receive Date: 20120723
  Receipt Date: 20120712
  Transmission Date: 20120928
  Serious: Yes (Hospitalization)
  Sender: FDA-Public Use
  Company Number: US-BRISTOL-MYERS SQUIBB COMPANY-16723009

PATIENT
  Age: 66 Year
  Sex: Female

DRUGS (31)
  1. FERROUS SULFATE TAB [Concomitant]
  2. KEFLEX [Concomitant]
  3. FOLIC ACID [Concomitant]
  4. LASIX [Concomitant]
  5. SIMETICONE [Concomitant]
  6. AMBIEN [Concomitant]
  7. CALCIUM CARBONATE [Concomitant]
  8. CHOLECALCIFEROL [Concomitant]
  9. COREG [Concomitant]
  10. CITALOPRAM HYDROBROMIDE [Concomitant]
  11. NORCO [Concomitant]
  12. LEVOTHYROXINE SODIUM [Concomitant]
  13. LOPERAMIDE [Concomitant]
  14. ACETAMINOPHEN [Concomitant]
  15. LOVAZA [Concomitant]
  16. AZITHROMYCIN [Concomitant]
  17. COLCHICINE [Concomitant]
  18. ARICEPT [Concomitant]
  19. VITAMIN B COMPLEX CAP [Concomitant]
  20. ROPINIROLE [Concomitant]
  21. TRAMADOL HYDROCHLORIDE [Concomitant]
  22. DICYCLOMINE [Concomitant]
  23. HYDROCODONE BITARTRATE [Concomitant]
  24. MULTI-VITAMIN [Concomitant]
  25. SOLIRIS [Suspect]
     Indication: PAROXYSMAL NOCTURNAL HAEMOGLOBINURIA
     Dosage: 900MG,Q2W,IVMAY12
     Route: 042
     Dates: start: 20120411, end: 20120509
  26. ZOLEDRONIC ACID [Concomitant]
  27. COUMADIN [Suspect]
     Indication: ATRIAL FIBRILLATION
     Route: 048
  28. ALLOPURINOL [Concomitant]
  29. ASCORBIC ACID [Concomitant]
  30. DILTIAZEM HCL [Concomitant]
  31. TROSPIUM CHLORIDE [Concomitant]

REACTIONS (16)
  - FALL [None]
  - PNEUMONIA PRIMARY ATYPICAL [None]
  - LUMBAR VERTEBRAL FRACTURE [None]
  - RENAL FAILURE CHRONIC [None]
  - HYPERTENSION [None]
  - ESCHERICHIA URINARY TRACT INFECTION [None]
  - INTERNATIONAL NORMALISED RATIO INCREASED [None]
  - MITRAL VALVE STENOSIS [None]
  - NORMAL PRESSURE HYDROCEPHALUS [None]
  - RESTLESS LEGS SYNDROME [None]
  - DEPRESSION [None]
  - DEMENTIA ALZHEIMER'S TYPE [None]
  - CONTUSION [None]
  - HYPOTHYROIDISM [None]
  - GOUT [None]
  - THROMBOCYTOPENIA [None]
